FAERS Safety Report 6526575-4 (Version None)
Quarter: 2010Q1

REPORT INFORMATION
  Report Type: 
  Country: None (occurrence: None)
  Receive Date: 20100105
  Receipt Date: 20091227
  Transmission Date: 20100710
  Serious: Yes (Other)
  Sender: FDA-Public Use
  Company Number: PHEH2009US16330

PATIENT
  Sex: Female

DRUGS (8)
  1. RECLAST [Suspect]
     Dosage: UNK
     Dates: start: 20091102
  2. VITAMIN D [Concomitant]
  3. PROZAC [Concomitant]
  4. LAMICTAL [Concomitant]
  5. DILANTIN                                /AUS/ [Concomitant]
  6. SUMATRIPTAN [Concomitant]
  7. LUVOX [Concomitant]
  8. B12 ^RECIP^ [Concomitant]

REACTIONS (19)
  - ASTHENIA [None]
  - BLISTER [None]
  - BONE PAIN [None]
  - CONVULSION [None]
  - DYSGEUSIA [None]
  - ERYTHEMA [None]
  - FEELING HOT [None]
  - FRACTURE [None]
  - GENERAL PHYSICAL HEALTH DETERIORATION [None]
  - MALAISE [None]
  - MUSCULOSKELETAL PAIN [None]
  - NAUSEA [None]
  - NECK PAIN [None]
  - PAIN [None]
  - PRURITUS [None]
  - PYREXIA [None]
  - RASH [None]
  - RETCHING [None]
  - VOMITING [None]
